FAERS Safety Report 4779456-0 (Version None)
Quarter: 2005Q3

REPORT INFORMATION
  Report Type: 
  Country: None (occurrence: None)
  Receive Date: 20050923
  Receipt Date: 20050920
  Transmission Date: 20060218
  Serious: Yes (Death)
  Sender: FDA-Public Use
  Company Number: USA-2005-0021089

PATIENT
  Age: 64 Year
  Sex: Female
  Weight: 71.7 kg

DRUGS (2)
  1. OXYCONTIN [Suspect]
  2. MORPHINE SULFATE [Suspect]

REACTIONS (17)
  - ATHEROSCLEROSIS [None]
  - CARDIOVASCULAR DISORDER [None]
  - CHRONIC OBSTRUCTIVE PULMONARY DISEASE [None]
  - COMPLETED SUICIDE [None]
  - DRUG TOXICITY [None]
  - EMPHYSEMA [None]
  - HYPERTENSION [None]
  - INTENTIONAL MISUSE [None]
  - LOSS OF CONSCIOUSNESS [None]
  - LUNG NEOPLASM MALIGNANT [None]
  - MOBILITY DECREASED [None]
  - MULTIPLE DRUG OVERDOSE [None]
  - NERVE INJURY [None]
  - PNEUMOCONIOSIS [None]
  - PULMONARY CONGESTION [None]
  - PULMONARY OEDEMA [None]
  - REFUSAL OF TREATMENT BY PATIENT [None]
